FAERS Safety Report 9458059 (Version 1)
Quarter: 2013Q3

REPORT INFORMATION
  Report Type: Spontaneous
  Country: US (occurrence: None)
  Receive Date: 20130812
  Receipt Date: 20130812
  Transmission Date: 20140515
  Serious: Yes (Hospitalization)
  Sender: FDA-Public Use
  Company Number: None

PATIENT
  Age: 83 Year
  Sex: Male
  Weight: 66.9 kg

DRUGS (3)
  1. ACETAZOLAMIDE [Suspect]
     Indication: GLAUCOMA
     Route: 048
     Dates: start: 20130615, end: 20130705
  2. ACETAZOLAMIDE [Suspect]
     Indication: OPEN ANGLE GLAUCOMA
     Route: 048
     Dates: start: 20130615, end: 20130705
  3. HYDROCHLOROTHIAZIDE [Suspect]
     Indication: HYPERTENSION
     Route: 048
     Dates: start: 20011210, end: 20130708

REACTIONS (2)
  - Renal failure acute [None]
  - Dehydration [None]
